FAERS Safety Report 20087869 (Version 1)
Quarter: 2021Q4

REPORT INFORMATION
  Report Type: Spontaneous
  Country: ES (occurrence: ES)
  Receive Date: 20211118
  Receipt Date: 20211118
  Transmission Date: 20220303
  Serious: Yes (Life-Threatening, Hospitalization)
  Sender: FDA-Public Use
  Company Number: ES-KRKA-ES2021K14778LIT

PATIENT
  Age: 80 Year
  Sex: Female

DRUGS (2)
  1. FLUOXETINE HYDROCHLORIDE [Interacting]
     Active Substance: FLUOXETINE HYDROCHLORIDE
     Indication: Depression
     Dosage: 20 MG, UNKNOWN
     Route: 065
  2. MOXIFLOXACIN [Interacting]
     Active Substance: MOXIFLOXACIN
     Indication: Skin ulcer
     Dosage: UNK, UNKNOWN
     Route: 065

REACTIONS (5)
  - Cardio-respiratory arrest [Recovered/Resolved]
  - Torsade de pointes [Recovered/Resolved]
  - Drug interaction [Unknown]
  - Tinnitus [Unknown]
  - Dizziness [Unknown]
